FAERS Safety Report 5422307-1 (Version None)
Quarter: 2007Q3

REPORT INFORMATION
  Report Type: 
  Country: None (occurrence: None)
  Receive Date: 20070820
  Receipt Date: 20070802
  Transmission Date: 20080115
  Serious: Yes (Other)
  Sender: FDA-Public Use
  Company Number: DSA_30208_2007

PATIENT
  Sex: Female

DRUGS (20)
  1. RENIVACE (RENIVACE - ENALAPRIL MALEATE) (BIOVAIL) [Suspect]
     Indication: DRUG USE FOR UNKNOWN INDICATION
     Dosage: (2.5 MG QD ORAL)
     Route: 048
  2. GASTER D (GASTER D - FAMOTIDINE) (NOT SPECIFIED) [Suspect]
     Indication: DRUG USE FOR UNKNOWN INDICATION
     Dosage: (10 MG QD ORAL)
     Route: 048
  3. ZYLORIC (ZYLORIC - ALLOPURINOL) (NOT SPECIFIED) [Suspect]
     Indication: DRUG USE FOR UNKNOWN INDICATION
     Dosage: (50 MG QD ORAL)
  4. NORVASC [Suspect]
  5. SODIUM BICARBONATE (SODIUM BACORBONATE) [Suspect]
     Indication: DRUG USE FOR UNKNOWN INDICATION
     Dosage: (1 G QD ORAL)
     Route: 048
  6. LIPITOR [Suspect]
     Indication: DRUG USE FOR UNKNOWN INDICATION
     Dosage: (10 MG, QD ORAL
     Route: 048
     Dates: end: 20070620
  7. THYRADIN (THYRADIN - DRIED THYROID) [Suspect]
     Indication: DRUG USE FOR UNKNOWN INDICATION
     Dosage: (25 UG QD ORAL)
     Route: 048
  8. LUPRAC (LUPRAC - TORASEMIDE) (NOT SPECIFIED) [Suspect]
     Indication: DRUG USE FOR UNKNOWN INDICATION
     Dosage: (8 MG QD ORAL)
     Route: 048
  9. CINAL /00257901/ (CINAL - ASCORBIC ACID, CALCIUM PANTOTHENATE) [Suspect]
     Indication: DRUG USE FOR UNKNOWN INDICATION
     Dosage: (1 G QD ORAL)
     Route: 048
  10. URSO (URSO - URSODEOXYCHOLIC ACID) [Suspect]
     Indication: DRUG USE FOR UNKNOWN INDICATION
  11. BIOFERM (BIOFERMIN - LACTOMIN, AMYLOLYTIC BACILLUS) [Suspect]
     Dosage: (3 G QD ORAL)
     Route: 048
  12. PREDONINE /00016201/ (PREDONINE - PREDNISOLONE) [Suspect]
     Indication: DRUG USE FOR UNKNOWN INDICATION
     Dosage: (2.5 MG QD ORAL)
     Route: 048
  13. CELLCEPT (CELLCEPT - MYCOPHENOLATE MOFETIL) (NOT SPECIFIED) [Suspect]
     Indication: DRUG USE FOR UNKNOWN INDICATION
     Dosage: (500 MG QD ORAL)
     Route: 048
  14. LASIX /00032601/ (LASIX - FUROSEMIDE) (NOT SPECIFIED) [Suspect]
     Indication: DRUG USE FOR UNKNOWN INDICATION
     Dosage: (80 MG QD ORAL)
     Route: 048
  15. NEORAL (NEORAL - CICLOSPORIN) (NOT SPECIFIED) [Suspect]
     Indication: DRUG USE FOR UNKNOWN INDICATION
     Dosage: (100 MG QD ORAL)
     Route: 048
  16. SULPERAZON /00883901/ (SULPERAZON CEFOPERAZONE SODIUM, SULBACTAM SODIU [Suspect]
     Indication: DRUG USE FOR UNKNOWN INDICATION
     Dosage: (DF INTRAVENOUS DRIP)
     Route: 041
     Dates: start: 20050701
  17. SULPERAZON /00883901/ (SULPERAZON CEROPERAZONE SODIUM SULBACTAM SODIUM [Suspect]
     Indication: DRUG USE FOR UNKNOWN INDICATION
     Dosage: (DF  INTRAVENOUS DRIP)
     Route: 041
     Dates: start: 20060101
  18. SULPERAZON /00883901/ (SULPERAZON CEFOPERAZONE SODIUM, SULBACTAM SODIU [Suspect]
     Indication: DRUG USE FOR UNKNOWN INDICATION
     Dosage: (DF INTRAVENOUS DRIP)
     Route: 041
     Dates: start: 20060801
  19. SULPERAZON /00883901/ (SULPERAZON EFOPERAZONE SODIUM, SULBACTAM SODIUM [Suspect]
     Indication: DRUG USE FOR UNKNOWN INDICATION
     Dosage: (DF INTRAVENOUS DRIP)
     Route: 041
     Dates: start: 20061201
  20. SULPERAZON /00883901/ (SULPERAZON EFOPERAZONE SODIUM, SULBACTAM SODIUM [Suspect]
     Indication: DRUG USE FOR UNKNOWN INDICATION
     Dosage: (DF INTRAVENOUS DRIP)
     Route: 041
     Dates: start: 20070328, end: 20070510

REACTIONS (8)
  - BLOOD PRESSURE DECREASED [None]
  - CHOLANGITIS [None]
  - LYMPHOCYTE COUNT DECREASED [None]
  - NEUTROPHIL COUNT INCREASED [None]
  - OXYGEN SATURATION DECREASED [None]
  - RHABDOMYOLYSIS [None]
  - SNEEZING [None]
  - VOMITING [None]
